FAERS Safety Report 8235691-0 (Version None)
Quarter: 2012Q1

REPORT INFORMATION
  Report Type: 
  Country: None (occurrence: None)
  Receive Date: 20120326
  Receipt Date: 20120323
  Transmission Date: 20120608
  Serious: Yes (Hospitalization)
  Sender: FDA-Public Use
  Company Number: US-PFIZER INC-2012076002

PATIENT
  Sex: Male

DRUGS (1)
  1. ZITHROMAX [Suspect]
     Indication: PYREXIA
     Dosage: UNK
     Dates: start: 20120307

REACTIONS (5)
  - HEPATIC ENZYME INCREASED [None]
  - WHITE BLOOD CELL COUNT INCREASED [None]
  - SPLENOMEGALY [None]
  - RASH GENERALISED [None]
  - HEPATOMEGALY [None]
